FAERS Safety Report 7859387-X (Version None)
Quarter: 2011Q4

REPORT INFORMATION
  Report Type: 
  Country: None (occurrence: None)
  Receive Date: 20111027
  Receipt Date: 20111013
  Transmission Date: 20120403
  Serious: Yes (Hospitalization, Other)
  Sender: FDA-Public Use
  Company Number: DE-RANBAXY-2009RR-22979

PATIENT
  Age: 76 Year
  Sex: Female
  Weight: 50 kg

DRUGS (4)
  1. METAMIZOL [Concomitant]
     Indication: ANALGESIC THERAPY
     Dosage: UNK
     Route: 065
  2. EPINEPHRINE [Concomitant]
     Indication: PRODUCT USED FOR UNKNOWN INDICATION
     Dosage: UNK
     Route: 065
     Dates: start: 20080923
  3. CALCILAC [Concomitant]
     Indication: OSTEOPOROSIS
     Dosage: UNK
     Route: 065
  4. IBUPROFEN [Suspect]
     Indication: BONE PAIN
     Dosage: 400 MG, BID
     Route: 048
     Dates: start: 20080301, end: 20080818

REACTIONS (2)
  - GASTRIC ULCER HAEMORRHAGE [None]
  - GASTRIC ULCER [None]
